FAERS Safety Report 4266045-X (Version None)
Quarter: 2004Q1

REPORT INFORMATION
  Report Type: 
  Country: None (occurrence: None)
  Receive Date: 20040106
  Receipt Date: 20031224
  Transmission Date: 20041129
  Serious: Yes (Other)
  Sender: FDA-Public Use
  Company Number: 200314162FR

PATIENT
  Age: 29 Year
  Sex: Male
  Weight: 78 kg

DRUGS (3)
  1. TRIAMCINOLONE ACETONIDE (NASACORT) SPRAY [Suspect]
     Indication: RHINITIS ALLERGIC
     Dosage: 220 UG/DAY INH
     Route: 045
     Dates: start: 20010101, end: 20030901
  2. PREDNISOLONE SODIUM SULFOBENZOATE (SOLUPRED) TABLETS [Suspect]
     Dosage: 2XY PO
     Route: 048
  3. MEQUITAZINE (PRIMALAN) [Concomitant]

REACTIONS (5)
  - ABASIA [None]
  - ARTHRALGIA [None]
  - GAIT DISTURBANCE [None]
  - OSTEONECROSIS [None]
  - X-RAY OF PELVIS AND HIP ABNORMAL [None]
